FAERS Safety Report 15491337 (Version 3)
Quarter: 2018Q4

REPORT INFORMATION
  Report Type: Spontaneous
  Country: CA (occurrence: CA)
  Receive Date: 20181012
  Receipt Date: 20181121
  Transmission Date: 20190205
  Serious: Yes (Other)
  Sender: FDA-Public Use
  Company Number: CA-CELLTRION INC.-2018CA022793

PATIENT

DRUGS (10)
  1. CELEBREX [Concomitant]
     Active Substance: CELECOXIB
     Dosage: UNK
  2. PLAQUENIL SULFATE [Concomitant]
     Active Substance: HYDROXYCHLOROQUINE SULFATE
     Dosage: UNK
  3. VITAMIN D                          /00107901/ [Concomitant]
     Active Substance: ERGOCALCIFEROL
     Dosage: UNK
  4. METHOTREXATE. [Concomitant]
     Active Substance: METHOTREXATE
     Dosage: UNK
     Dates: start: 2008
  5. CALCIUM [Concomitant]
     Active Substance: CALCIUM
     Dosage: UNK
  6. INFLECTRA [Suspect]
     Active Substance: INFLIXIMAB-DYYB
     Dosage: 5 MG/KG, CYCLIC (WEEKS 0, 2, 6 THEN Q 8 WEEKS
     Route: 042
     Dates: start: 20180927
  7. IRON [Concomitant]
     Active Substance: IRON
     Dosage: UNK
  8. INFLECTRA [Suspect]
     Active Substance: INFLIXIMAB-DYYB
     Indication: CROHN^S DISEASE
     Dosage: 5 MG/KG, CYCLIC (WEEKS 0, 2, 6 THEN Q 8 WEEKS
     Route: 042
     Dates: start: 20180913
  9. INFLECTRA [Suspect]
     Active Substance: INFLIXIMAB-DYYB
     Dosage: 5 MG/KG, CYCLIC (WEEKS 0, 2, 6 THEN Q 8 WEEKS
     Route: 042
     Dates: start: 20181107
  10. FOLIC ACID. [Concomitant]
     Active Substance: FOLIC ACID
     Dosage: UNK

REACTIONS (12)
  - Inappropriate schedule of product administration [Unknown]
  - Arthralgia [Unknown]
  - Dizziness [Unknown]
  - Localised infection [Recovering/Resolving]
  - Weight increased [Unknown]
  - Rash [Not Recovered/Not Resolved]
  - Vascular device occlusion [Recovered/Resolved]
  - Erythema [Recovering/Resolving]
  - Oedema peripheral [Recovering/Resolving]
  - Condition aggravated [Not Recovered/Not Resolved]
  - Hyperaesthesia [Unknown]
  - Blood pressure fluctuation [Unknown]

NARRATIVE: CASE EVENT DATE: 201809
